FAERS Safety Report 13615301 (Version 1)
Quarter: 2017Q2

REPORT INFORMATION
  Report Type: Spontaneous
  Country: US (occurrence: US)
  Receive Date: 20170606
  Receipt Date: 20170606
  Transmission Date: 20170830
  Serious: No
  Sender: FDA-Public Use
  Company Number: US-ELI_LILLY_AND_COMPANY-US201705012236

PATIENT
  Age: 10 Year
  Sex: Male

DRUGS (2)
  1. BASAGLAR [Suspect]
     Active Substance: INSULIN GLARGINE
     Indication: TYPE 1 DIABETES MELLITUS
     Dosage: 1 IU, EACH EVENING
     Route: 058
     Dates: start: 201703
  2. BASAGLAR [Suspect]
     Active Substance: INSULIN GLARGINE
     Dosage: 1 IU, EACH EVENING
     Route: 058
     Dates: start: 20170411

REACTIONS (2)
  - Underdose [Not Recovered/Not Resolved]
  - Blood glucose increased [Not Recovered/Not Resolved]

NARRATIVE: CASE EVENT DATE: 20170426
